FAERS Safety Report 5839165-3 (Version None)
Quarter: 2008Q3

REPORT INFORMATION
  Report Type: 
  Country: None (occurrence: None)
  Receive Date: 20080808
  Receipt Date: 20080729
  Transmission Date: 20090109
  Serious: Yes (Other)
  Sender: FDA-Public Use
  Company Number: US-PFIZER INC-2008055753

PATIENT
  Sex: Female
  Weight: 54.545 kg

DRUGS (4)
  1. CHANTIX [Suspect]
     Indication: SMOKING CESSATION THERAPY
     Dates: start: 20080526, end: 20080615
  2. HYDROCHLOROTHIAZIDE [Concomitant]
     Indication: HYPERTENSION
  3. LISINOPRIL [Concomitant]
     Indication: HYPERTENSION
  4. CELEXA [Concomitant]
     Indication: DEPRESSION

REACTIONS (5)
  - APHONIA [None]
  - DISSOCIATION [None]
  - HALLUCINATION [None]
  - SUICIDAL BEHAVIOUR [None]
  - URINE OUTPUT DECREASED [None]
